FAERS Safety Report 17292579 (Version 1)
Quarter: 2020Q1

REPORT INFORMATION
  Report Type: Spontaneous
  Country: RU (occurrence: RU)
  Receive Date: 20200121
  Receipt Date: 20200121
  Transmission Date: 20200409
  Serious: Yes (Hospitalization, Other)
  Sender: FDA-Public Use
  Company Number: RU-BAYER-2020-001434

PATIENT
  Age: 88 Year
  Sex: Female

DRUGS (1)
  1. ULTRAVIST [Suspect]
     Active Substance: IOPROMIDE
     Dosage: UNK UNK, ONCE

REACTIONS (7)
  - Cough [Recovered/Resolved]
  - Cyanosis [Recovered/Resolved]
  - Sputum abnormal [Recovered/Resolved]
  - Respiratory arrest [Recovered/Resolved]
  - Suspected product quality issue [None]
  - Dyspnoea [Recovered/Resolved]
  - Anaphylactic reaction [Recovered/Resolved]
